FAERS Safety Report 9581123 (Version 3)
Quarter: 2014Q2

REPORT INFORMATION
  Report Type: Spontaneous
  Country: US (occurrence: US)
  Receive Date: 20131002
  Receipt Date: 20140627
  Transmission Date: 20141212
  Serious: Yes (Death)
  Sender: FDA-Public Use
  Company Number: US-BRISTOL-MYERS SQUIBB COMPANY-19413079

PATIENT
  Age: 53 Year
  Sex: Male

DRUGS (10)
  1. BYETTA [Suspect]
     Indication: TYPE 2 DIABETES MELLITUS
     Dates: start: 200703, end: 2009
  2. JANUMET [Suspect]
     Indication: TYPE 2 DIABETES MELLITUS
     Dates: start: 200908, end: 2010
  3. JANUVIA [Suspect]
     Indication: TYPE 2 DIABETES MELLITUS
     Dosage: TILL APR07, AGAIN MAR10-JUN10
     Dates: end: 201006
  4. LANTUS [Concomitant]
  5. HUMALOG [Concomitant]
  6. CREON [Concomitant]
     Dosage: 1DF = 12000 UNIT
  7. IMODIUM [Concomitant]
  8. ZOFRAN [Concomitant]
  9. ALLEGRA [Concomitant]
  10. POTASSIUM [Concomitant]
     Route: 048

REACTIONS (1)
  - Pancreatic carcinoma [Fatal]
